FAERS Safety Report 20033584 (Version 1)
Quarter: 2021Q4

REPORT INFORMATION
  Report Type: Spontaneous
  Country: US (occurrence: US)
  Receive Date: 20211104
  Receipt Date: 20211104
  Transmission Date: 20220303
  Serious: Yes (Hospitalization, Other)
  Sender: FDA-Public Use
  Company Number: US-BAYER-2021A241649

PATIENT
  Age: 44 Year
  Sex: Male

DRUGS (3)
  1. ASPIRIN [Interacting]
     Active Substance: ASPIRIN
     Indication: Antiplatelet therapy
  2. CLOPIDOGREL [Interacting]
     Active Substance: CLOPIDOGREL BISULFATE
     Indication: Antiplatelet therapy
  3. NICARDIPINE [Concomitant]
     Active Substance: NICARDIPINE
     Indication: Blood pressure abnormal

REACTIONS (2)
  - Subcapsular renal haematoma [None]
  - Labelled drug-drug interaction medication error [None]
